FAERS Safety Report 13220685 (Version 2)
Quarter: 2017Q1

REPORT INFORMATION
  Report Type: Spontaneous
  Country: JP (occurrence: JP)
  Receive Date: 20170211
  Receipt Date: 20170227
  Transmission Date: 20170428
  Serious: Yes (Life-Threatening, Other)
  Sender: FDA-Public Use
  Company Number: JP-AMGEN-JPNSP2017022532

PATIENT
  Age: 6 Decade
  Sex: Male
  Weight: 52.3 kg

DRUGS (19)
  1. ELPLAT [Concomitant]
     Active Substance: OXALIPLATIN
     Dosage: 100 MG, Q3WEEKS
     Route: 041
     Dates: start: 20170105
  2. 5-FU                               /00098801/ [Concomitant]
     Active Substance: FLUOROURACIL
     Indication: COLON CANCER
     Dosage: 900 MG, Q3WEEKS
     Route: 042
     Dates: start: 20161215
  3. AMLODIPINE                         /00972402/ [Concomitant]
     Active Substance: AMLODIPINE BESYLATE
     Dosage: UNK
     Route: 048
  4. VECTIBIX [Suspect]
     Active Substance: PANITUMUMAB
     Indication: COLON CANCER
     Dosage: 300 MG, Q3WK
     Route: 041
     Dates: start: 20161215
  5. MINOCYCLINE HYDROCHLORIDE. [Concomitant]
     Active Substance: MINOCYCLINE HYDROCHLORIDE
     Indication: PROPHYLAXIS
     Dosage: 100 MG, BID
     Route: 048
     Dates: start: 20161215, end: 20170221
  6. URSO [Concomitant]
     Active Substance: URSODIOL
     Indication: HEPATIC FUNCTION ABNORMAL
     Dosage: 100 MG, BID
     Route: 048
     Dates: start: 20161129
  7. 5-FU                               /00098801/ [Concomitant]
     Active Substance: FLUOROURACIL
     Dosage: 700 MG, Q3WEEKS
     Route: 042
     Dates: start: 20170105
  8. 5-FU                               /00098801/ [Concomitant]
     Active Substance: FLUOROURACIL
     Dosage: UNK UNK, Q3WEEKS
     Route: 042
     Dates: start: 20170126
  9. LEVOFOLINATE                       /06682101/ [Concomitant]
     Active Substance: LEVOLEUCOVORIN
     Dosage: UNK UNK, Q3WEEKS
     Dates: start: 20170126
  10. METOPROLOL TARTRATE. [Concomitant]
     Active Substance: METOPROLOL TARTRATE
     Dosage: UNK
     Route: 048
  11. VALSARTAN. [Concomitant]
     Active Substance: VALSARTAN
     Dosage: UNK
     Route: 048
  12. LEVOFOLINATE                       /06682101/ [Concomitant]
     Active Substance: LEVOLEUCOVORIN
     Indication: COLON CANCER
     Dosage: 150 MG, Q3WEEKS
     Route: 041
     Dates: start: 20161215
  13. DECADRON                           /00016002/ [Concomitant]
     Active Substance: DEXAMETHASONE
     Indication: PROPHYLAXIS OF NAUSEA AND VOMITING
     Dosage: 6.6 MG, QD
     Route: 041
     Dates: start: 20170105, end: 20170105
  14. FERROUS SODIUM CITRATE [Concomitant]
     Active Substance: SODIUM FERROUS CITRATE
     Indication: IRON DEFICIENCY ANAEMIA
     Dosage: 50 MG, BID
     Route: 048
     Dates: start: 20161201
  15. EMEND [Concomitant]
     Active Substance: APREPITANT
     Indication: VOMITING
     Dosage: 80 MG, BID
     Route: 048
     Dates: start: 20170105, end: 20170107
  16. CALCIUM LEVOFOLINATE [Concomitant]
     Active Substance: LEVOLEUCOVORIN CALCIUM
     Indication: COLON CANCER
     Dosage: UNK
     Route: 041
     Dates: start: 201612
  17. ALOXI [Concomitant]
     Active Substance: PALONOSETRON HYDROCHLORIDE
     Indication: PROPHYLAXIS OF NAUSEA AND VOMITING
     Dosage: 0.75 MG, QD
     Route: 041
     Dates: start: 20170105, end: 20170105
  18. ELPLAT [Concomitant]
     Active Substance: OXALIPLATIN
     Indication: COLON CANCER
     Dosage: 120 MG, Q3WEEKS
     Route: 041
     Dates: start: 20161215
  19. ELPLAT [Concomitant]
     Active Substance: OXALIPLATIN
     Dosage: UNK UNK, Q3WEEKS
     Route: 041
     Dates: start: 20170126

REACTIONS (4)
  - Stomatitis [Unknown]
  - Pruritus [Unknown]
  - Rash [Unknown]
  - Acute myocardial infarction [Recovered/Resolved]

NARRATIVE: CASE EVENT DATE: 20170107
